FAERS Safety Report 22520469 (Version 1)
Quarter: 2023Q2

REPORT INFORMATION
  Report Type: Spontaneous
  Country: US (occurrence: None)
  Receive Date: 20230524
  Receipt Date: 20230524
  Transmission Date: 20230721
  Serious: No
  Sender: FDA-Public Use
  Company Number: None

PATIENT

DRUGS (2)
  1. RHOPHYLAC [Suspect]
     Active Substance: HUMAN RHO(D) IMMUNE GLOBULIN
  2. RABIES VACCINE [Suspect]
     Active Substance: RABIES VACCINE

REACTIONS (2)
  - Product dispensing error [None]
  - Wrong product administered [None]
